FAERS Safety Report 13617053 (Version 1)
Quarter: 2017Q2

REPORT INFORMATION
  Report Type: Spontaneous
  Country: US (occurrence: US)
  Receive Date: 20170606
  Receipt Date: 20170606
  Transmission Date: 20170830
  Serious: No
  Sender: FDA-Public Use
  Company Number: US-SA-2016SA153898

PATIENT
  Age: 66 Year
  Sex: Female
  Weight: 85.7 kg

DRUGS (3)
  1. SOLOSTAR [Concomitant]
     Active Substance: DEVICE
     Indication: TYPE 1 DIABETES MELLITUS
  2. LANTUS SOLOSTAR [Suspect]
     Active Substance: INSULIN GLARGINE
     Indication: TYPE 1 DIABETES MELLITUS
     Dosage: DOSE:25 U IN AM 24?U PM
     Route: 065
  3. INSULIN [Concomitant]
     Active Substance: INSULIN NOS

REACTIONS (6)
  - Product use issue [Unknown]
  - Stress [Unknown]
  - Hypertension [Unknown]
  - Arthritis [Unknown]
  - Joint swelling [Unknown]
  - Pain [Unknown]
